FAERS Safety Report 5944884-4 (Version None)
Quarter: 2008Q4

REPORT INFORMATION
  Report Type: 
  Country: None (occurrence: None)
  Receive Date: 20081107
  Receipt Date: 20081031
  Transmission Date: 20090506
  Serious: Yes (Death, Life-Threatening, Hospitalization)
  Sender: FDA-Public Use
  Company Number: ES-JNJFOC-20081003044

PATIENT
  Age: 83 Year
  Sex: Female

DRUGS (3)
  1. REMICADE [Suspect]
     Indication: RHEUMATOID ARTHRITIS
     Dosage: 2584 DAYS
     Route: 042
  2. ADALIMUMAB [Concomitant]
     Indication: RHEUMATOID ARTHRITIS
     Route: 058
  3. METOJECT [Concomitant]
     Route: 058

REACTIONS (1)
  - MULTIPLE MYELOMA [None]
